APPROVED DRUG PRODUCT: TRIENTINE HYDROCHLORIDE
Active Ingredient: TRIENTINE HYDROCHLORIDE
Strength: 500MG
Dosage Form/Route: CAPSULE;ORAL
Application: A212238 | Product #002
Applicant: RISING PHARMA HOLDINGS INC
Approved: Sep 22, 2023 | RLD: No | RS: Yes | Type: RX